FAERS Safety Report 19213347 (Version 2)
Quarter: 2021Q3

REPORT INFORMATION
  Report Type: Spontaneous
  Country: US (occurrence: US)
  Receive Date: 20210504
  Receipt Date: 20210723
  Transmission Date: 20211014
  Serious: Yes (Other)
  Sender: FDA-Public Use
  Company Number: US-TEVA-2021-US-1907158

PATIENT
  Age: 23 Year
  Sex: Female

DRUGS (4)
  1. DOXORUBICIN [Suspect]
     Active Substance: DOXORUBICIN
     Indication: PANCREATOBLASTOMA
     Dosage: RECEIVED SIX CYCLES
     Route: 065
  2. ETOPOSIDE. [Suspect]
     Active Substance: ETOPOSIDE
     Indication: PANCREATOBLASTOMA
     Dosage: RECEIVED SIX CYCLES
     Route: 065
  3. CEFAZOLIN [Suspect]
     Active Substance: CEFAZOLIN
     Indication: STAPHYLOCOCCAL INFECTION
     Route: 065
  4. CISPLATIN. [Suspect]
     Active Substance: CISPLATIN
     Indication: PANCREATOBLASTOMA
     Dosage: RECEIVED SIX CYCLES
     Route: 065

REACTIONS (9)
  - Syncope [Unknown]
  - Tension headache [Unknown]
  - Maternal exposure during pregnancy [Recovered/Resolved]
  - Abdominal pain [Unknown]
  - Normal newborn [Recovered/Resolved]
  - Cardiac murmur [Unknown]
  - Nausea [Unknown]
  - Tinnitus [Unknown]
  - Hypotension [Unknown]
